FAERS Safety Report 7725642-7 (Version None)
Quarter: 2011Q3

REPORT INFORMATION
  Report Type: 
  Country: None (occurrence: None)
  Receive Date: 20110902
  Receipt Date: 20110830
  Transmission Date: 20111222
  Serious: Yes (Hospitalization)
  Sender: FDA-Public Use
  Company Number: NL-ASTELLAS-2011EU005822

PATIENT
  Sex: Male
  Weight: 76 kg

DRUGS (7)
  1. VESICARE [Suspect]
     Indication: POLLAKIURIA
     Dosage: 5 MG, UNKNOWN/D
     Route: 048
     Dates: start: 20110720, end: 20110722
  2. MARCOUMAR [Concomitant]
     Dosage: 3 MG, UNKNOWN/D
     Route: 065
  3. EZETIMIBE [Concomitant]
     Dosage: 10 MG, UID/QD
     Route: 065
  4. COVERSYL ARGININE [Concomitant]
     Dosage: 5 MG, UID/QD
     Route: 065
  5. METOPROLOL SUCCINATE [Concomitant]
     Dosage: 95 MG, UID/QD
     Route: 065
  6. LIPITOR [Concomitant]
     Dosage: 80 MG, UID/QD
     Route: 065
  7. PLAVIX [Concomitant]
     Dosage: 75 MG, UID/QD
     Route: 065

REACTIONS (2)
  - TORSADE DE POINTES [None]
  - VENTRICULAR TACHYCARDIA [None]
